FAERS Safety Report 19248994 (Version 4)
Quarter: 2024Q3

REPORT INFORMATION
  Report Type: Report from Study
  Country: US (occurrence: US)
  Receive Date: 20210512
  Receipt Date: 20240918
  Transmission Date: 20241017
  Serious: Yes (Hospitalization, Other)
  Sender: TAKEDA
  Company Number: US-SHIRE-US201918476AA

PATIENT
  Age: 68 Year
  Sex: Male

DRUGS (1)
  1. HUMAN IMMUNOGLOBULIN G [Suspect]
     Active Substance: HUMAN IMMUNOGLOBULIN G
     Indication: Primary immunodeficiency syndrome
     Dosage: UNK
     Route: 058

REACTIONS (11)
  - General physical health deterioration [Unknown]
  - Hypoacusis [Unknown]
  - Infusion related reaction [Unknown]
  - Sleep apnoea syndrome [Unknown]
  - Back disorder [Unknown]
  - Sinusitis [Unknown]
  - Heart rate increased [Unknown]
  - Insurance issue [Unknown]
  - Product use issue [Unknown]
  - Limb injury [Unknown]
  - Infusion site reaction [Unknown]

NARRATIVE: CASE EVENT DATE: 20240913
